FAERS Safety Report 10397723 (Version 2)
Quarter: 2016Q1

REPORT INFORMATION
  Report Type: Spontaneous
  Country: ES (occurrence: ES)
  Receive Date: 20140821
  Receipt Date: 20160121
  Transmission Date: 20160525
  Serious: Yes (Other)
  Sender: FDA-Public Use
  Company Number: ES-AMGEN-ESPSP2014062452

PATIENT
  Age: 75 Year
  Sex: Female

DRUGS (10)
  1. ERYTHROPOIETIN [Concomitant]
     Active Substance: ERYTHROPOIETIN
  2. CALCIFEDIOL [Concomitant]
     Active Substance: CALCIFEDIOL
  3. NIFEDIPINE. [Concomitant]
     Active Substance: NIFEDIPINE
  4. TORSEMIDE. [Concomitant]
     Active Substance: TORSEMIDE
  5. DOXAZOSIN [Concomitant]
     Active Substance: DOXAZOSIN\DOXAZOSIN MESYLATE
  6. IRON [Concomitant]
     Active Substance: IRON
     Route: 048
  7. INSULIN [Concomitant]
     Active Substance: INSULIN NOS
  8. PARICALCITOL. [Concomitant]
     Active Substance: PARICALCITOL
  9. PROLIA [Suspect]
     Active Substance: DENOSUMAB
     Indication: PRODUCT USED FOR UNKNOWN INDICATION
     Dosage: 60 MG, Q6MO
     Route: 058
  10. ACETYLSALICYLIC ACID [Concomitant]
     Active Substance: ASPIRIN

REACTIONS (3)
  - Hyperparathyroidism [Not Recovered/Not Resolved]
  - Hypocalcaemia [Unknown]
  - Blood alkaline phosphatase decreased [Unknown]
